FAERS Safety Report 5178379-5 (Version None)
Quarter: 2006Q4

REPORT INFORMATION
  Report Type: 
  Country: None (occurrence: None)
  Receive Date: 20061218
  Receipt Date: 20060822
  Transmission Date: 20070319
  Serious: No
  Sender: FDA-Public Use
  Company Number: US-AMGEN-KDL190894

PATIENT
  Sex: Female

DRUGS (1)
  1. ENBREL [Suspect]
     Indication: RHEUMATOID ARTHRITIS
     Route: 058
     Dates: start: 20060608

REACTIONS (7)
  - ALOPECIA [None]
  - INJECTION SITE REACTION [None]
  - LYMPHADENOPATHY [None]
  - PARAESTHESIA [None]
  - PRURITUS [None]
  - RASH [None]
  - RESPIRATORY DISORDER [None]
